FAERS Safety Report 14110504 (Version 2)
Quarter: 2017Q4

REPORT INFORMATION
  Report Type: Spontaneous
  Country: US (occurrence: US)
  Receive Date: 20171020
  Receipt Date: 20171106
  Transmission Date: 20180321
  Serious: No
  Sender: FDA-Public Use
  Company Number: US-009507513-1709USA014793

PATIENT
  Sex: Male
  Weight: 100 kg

DRUGS (2)
  1. INVANZ [Suspect]
     Active Substance: ERTAPENEM SODIUM
     Indication: CELLULITIS
     Dosage: 1 G, Q24H
     Dates: start: 20170922
  2. STERILE DILUENT [Suspect]
     Active Substance: WATER
     Dosage: UNK

REACTIONS (4)
  - No adverse event [Unknown]
  - Product contamination [Unknown]
  - Product leakage [Unknown]
  - Product colour issue [Unknown]
